FAERS Safety Report 9223087 (Version 2)
Quarter: 2013Q2

REPORT INFORMATION
  Report Type: Report from Study
  Country: US (occurrence: US)
  Receive Date: 20130410
  Receipt Date: 20130520
  Transmission Date: 20140414
  Serious: Yes (Death)
  Sender: FDA-Public Use
  Company Number: US-ROCHE-1210288

PATIENT
  Sex: Female

DRUGS (2)
  1. ALTEPLASE [Suspect]
     Indication: ISCHAEMIC STROKE
     Dosage: 15% BOLOUS THE REMAINDER OVER 30 MIN
     Route: 042
  2. ALTEPLASE [Suspect]
     Route: 013

REACTIONS (2)
  - Cardio-respiratory arrest [Fatal]
  - Pneumonia aspiration [Fatal]
